FAERS Safety Report 24451562 (Version 9)
Quarter: 2025Q2

REPORT INFORMATION
  Report Type: Spontaneous
  Country: US (occurrence: US)
  Receive Date: 20241017
  Receipt Date: 20250530
  Transmission Date: 20250717
  Serious: Yes (Other)
  Sender: PFIZER
  Company Number: US-PFIZER INC-PV202400121654

PATIENT
  Age: 76 Year
  Sex: Female
  Weight: 78.02 kg

DRUGS (10)
  1. BRAFTOVI [Suspect]
     Active Substance: ENCORAFENIB
     Indication: Adenocarcinoma of appendix
     Dates: start: 2024
  2. BRAFTOVI [Suspect]
     Active Substance: ENCORAFENIB
     Indication: Appendix cancer
     Dosage: 300 MG, 1X/DAY (75MG, TAKE 4 CAPSULE (300MG) ONCE DAILY)
     Route: 048
  3. BRAFTOVI [Suspect]
     Active Substance: ENCORAFENIB
     Dosage: TAKE 3 CAPSULES (225 MG) BY MOUTH ONCE DAILY
     Route: 048
  4. BRAFTOVI [Suspect]
     Active Substance: ENCORAFENIB
     Dosage: 300 MG, DAILY (75 MG 4 CAPSULES DAILY)
     Route: 048
  5. BRAFTOVI [Suspect]
     Active Substance: ENCORAFENIB
  6. BRAFTOVI [Suspect]
     Active Substance: ENCORAFENIB
     Dosage: 75MG, 4 CAPSULES ONCE A DAY, BY MOUTH
     Route: 048
  7. XANAX [Concomitant]
     Active Substance: ALPRAZOLAM
  8. NEURONTIN [Concomitant]
     Active Substance: GABAPENTIN
     Dosage: 100 MG, 2X/DAY (FOR 180 DAYS)
     Route: 048
  9. ANASTROZOLE [Concomitant]
     Active Substance: ANASTROZOLE
     Indication: Breast cancer female
     Dosage: UNK UNK, DAILY
  10. ERBITUX [Concomitant]
     Active Substance: CETUXIMAB
     Indication: Appendix cancer
     Dosage: TAKES INFUSION ONCE A WEEK

REACTIONS (9)
  - Second primary malignancy [Not Recovered/Not Resolved]
  - Squamous cell carcinoma of skin [Not Recovered/Not Resolved]
  - Neuropathy peripheral [Unknown]
  - Carcinoembryonic antigen increased [Unknown]
  - Acne [Unknown]
  - Neoplasm skin [Unknown]
  - Illness [Unknown]
  - Adrenal mass [Unknown]
  - Off label use [Unknown]

NARRATIVE: CASE EVENT DATE: 20240101
